FAERS Safety Report 5362300-0 (Version None)
Quarter: 2007Q2

REPORT INFORMATION
  Report Type: 
  Country: None (occurrence: None)
  Receive Date: 20070619
  Receipt Date: 20070619
  Transmission Date: 20071010
  Serious: Yes (Life-Threatening)
  Sender: FDA-Public Use
  Company Number: B0452046A

PATIENT
  Age: 83 Year
  Sex: Female

DRUGS (3)
  1. CLAMOXYL [Suspect]
     Indication: BRONCHITIS
     Dosage: 500MG TWICE PER DAY
     Route: 048
     Dates: start: 20061227, end: 20061229
  2. PULMICORT [Concomitant]
     Indication: ASTHMA
     Route: 065
  3. DONORMYL [Concomitant]
     Indication: SLEEP DISORDER
     Route: 065

REACTIONS (9)
  - ABDOMINAL PAIN [None]
  - ANAL DISCOMFORT [None]
  - GENITAL BURNING SENSATION [None]
  - HEADACHE [None]
  - HYPERSENSITIVITY [None]
  - PRURITUS [None]
  - RESPIRATORY DISORDER [None]
  - SKIN BURNING SENSATION [None]
  - URTICARIA GENERALISED [None]
